FAERS Safety Report 9048562 (Version 1)
Quarter: 2013Q1

REPORT INFORMATION
  Report Type: Spontaneous
  Country: US (occurrence: None)
  Receive Date: 20130130
  Receipt Date: 20130130
  Transmission Date: 20140127
  Serious: Yes (Hospitalization)
  Sender: FDA-Public Use
  Company Number: None

PATIENT
  Age: 53 Year
  Sex: Female
  Weight: 90.2 kg

DRUGS (17)
  1. SOMA [Suspect]
     Indication: NECK SURGERY
     Dosage: Q8HR PRN?CHROINC
     Route: 048
  2. SOMA [Suspect]
     Indication: POSTOPERATIVE CARE
     Dosage: Q8HR PRN?CHROINC
     Route: 048
  3. ATIVAN [Suspect]
     Indication: ANXIETY
     Dosage: CHRONIC
     Route: 048
  4. REMERON [Concomitant]
  5. TOPROL XL [Concomitant]
  6. SEROQUEL [Concomitant]
  7. LOSARTAN [Concomitant]
  8. AMLODIPINE [Concomitant]
  9. LAMOTRIGINE [Concomitant]
  10. BENZOTROPINE [Concomitant]
  11. CLONIDINE [Concomitant]
  12. TIZANIDINE [Concomitant]
  13. DICLOFENAC [Concomitant]
  14. PROMETHAZINE [Concomitant]
  15. GABAPENTIN [Concomitant]
  16. PROTONIX [Concomitant]
  17. ALLOPURINOL [Concomitant]

REACTIONS (3)
  - Delirium [None]
  - Polymedication [None]
  - Accidental overdose [None]
